FAERS Safety Report 9484269 (Version 1)
Quarter: 2013Q3

REPORT INFORMATION
  Report Type: Spontaneous
  Country: US (occurrence: US)
  Receive Date: 20130828
  Receipt Date: 20130828
  Transmission Date: 20140515
  Serious: Yes (Other)
  Sender: FDA-Public Use
  Company Number: US-AMGEN-KDL400409

PATIENT
  Sex: Female
  Weight: 55.4 kg

DRUGS (3)
  1. ENBREL [Suspect]
     Indication: PRODUCT USED FOR UNKNOWN INDICATION
     Dosage: 50 MG, UNK
     Route: 065
  2. TOPIRAMATE [Concomitant]
     Dosage: 100 MG, UNK
  3. IBUPROFEN [Concomitant]
     Dosage: 200 MG, UNK

REACTIONS (4)
  - Drug hypersensitivity [Unknown]
  - Dyspnoea [Unknown]
  - Injection site urticaria [Unknown]
  - Urticaria [Unknown]
